FAERS Safety Report 17115519 (Version 1)
Quarter: 2019Q4

REPORT INFORMATION
  Report Type: Other
  Country: CA (occurrence: CA)
  Receive Date: 20191205
  Receipt Date: 20191205
  Transmission Date: 20200122
  Serious: Yes (Life-Threatening)
  Sender: FDA-Public Use
  Company Number: CA-PFIZER INC-2019523756

PATIENT
  Age: 64 Year
  Sex: Female

DRUGS (5)
  1. DESFLURANE. [Concomitant]
     Active Substance: DESFLURANE
     Dosage: UNK
  2. BUPIVACAINE. [Concomitant]
     Active Substance: BUPIVACAINE
     Dosage: UNK
  3. MORPHINE SULFATE. [Suspect]
     Active Substance: MORPHINE SULFATE
     Indication: PERIOPERATIVE ANALGESIA
     Dosage: 0.025 MG/ML
     Route: 008
  4. MORPHINE SULFATE. [Suspect]
     Active Substance: MORPHINE SULFATE
     Dosage: 2 MG, UNK
     Route: 008
  5. FENTANYL CITRATE. [Suspect]
     Active Substance: FENTANYL CITRATE
     Indication: INDUCTION OF ANAESTHESIA
     Dosage: 0.1 MG, UNK
     Route: 042

REACTIONS (4)
  - Off label use [Unknown]
  - Blood pressure decreased [Recovering/Resolving]
  - Product use issue [Unknown]
  - Respiratory depression [Recovering/Resolving]
